FAERS Safety Report 11461938 (Version 1)
Quarter: 2015Q3

REPORT INFORMATION
  Report Type: Spontaneous
  Country: US (occurrence: US)
  Receive Date: 20150831
  Receipt Date: 20150831
  Transmission Date: 20151125
  Serious: No
  Sender: FDA-Public Use
  Company Number: US-ELI_LILLY_AND_COMPANY-US200908000873

PATIENT
  Age: 36 Year
  Sex: Female

DRUGS (1)
  1. CYMBALTA [Suspect]
     Active Substance: DULOXETINE HYDROCHLORIDE
     Indication: DEPRESSION
     Dosage: 30 MG, 2/D
     Dates: start: 2009, end: 20090801

REACTIONS (6)
  - Drug withdrawal syndrome [Unknown]
  - Motion sickness [Unknown]
  - Headache [Unknown]
  - Vomiting [Unknown]
  - Impaired driving ability [Unknown]
  - Paraesthesia [Unknown]

NARRATIVE: CASE EVENT DATE: 20090801
